FAERS Safety Report 18541434 (Version 1)
Quarter: 2020Q4

REPORT INFORMATION
  Report Type: Other
  Country: DE (occurrence: DE)
  Receive Date: 20201124
  Receipt Date: 20201124
  Transmission Date: 20210114
  Serious: No
  Sender: FDA-Public Use
  Company Number: DE-LUPIN PHARMACEUTICALS INC.-2020-03341

PATIENT
  Sex: Male

DRUGS (2)
  1. QUETIAPINE FUMARATE EXTENDED-RELEASE TABLETS, 150 MG [Suspect]
     Active Substance: QUETIAPINE FUMARATE
     Indication: PRODUCT USED FOR UNKNOWN INDICATION
     Dosage: 150 MILLIGRAM, BID (2X IN THE EVENING)
     Route: 065
  2. QUETIAPINE 25 MG TABLETS [Suspect]
     Active Substance: QUETIAPINE
     Indication: PRODUCT USED FOR UNKNOWN INDICATION
     Dosage: UNK UNK, PRN (AS A NEED SEVERAL TIMES A DAY)
     Route: 065

REACTIONS (4)
  - Abdominal pain lower [Unknown]
  - Hot flush [Unknown]
  - Abdominal discomfort [Unknown]
  - Feeling cold [Unknown]
